FAERS Safety Report 16663373 (Version 1)
Quarter: 2019Q3

REPORT INFORMATION
  Report Type: Report from Study
  Country: US (occurrence: US)
  Receive Date: 20190802
  Receipt Date: 20190802
  Transmission Date: 20191004
  Serious: No
  Sender: FDA-Public Use
  Company Number: US-EXELIXIS-CABO-19020657

PATIENT
  Sex: Female

DRUGS (4)
  1. CABOMETYX [Suspect]
     Active Substance: CABOZANTINIB S-MALATE
     Dosage: 40 MG, QD
     Route: 048
  2. FENTANYL. [Concomitant]
     Active Substance: FENTANYL
  3. CABOMETYX [Suspect]
     Active Substance: CABOZANTINIB S-MALATE
     Indication: NEOPLASM MALIGNANT
     Dosage: 60 MG, QD
     Route: 048
     Dates: start: 20180619
  4. REMERON [Concomitant]
     Active Substance: MIRTAZAPINE

REACTIONS (4)
  - Oral disorder [Unknown]
  - Impaired healing [Not Recovered/Not Resolved]
  - Glossodynia [Unknown]
  - Blister [Unknown]
